FAERS Safety Report 8159278-3 (Version None)
Quarter: 2012Q1

REPORT INFORMATION
  Report Type: 
  Country: None (occurrence: None)
  Receive Date: 20120223
  Receipt Date: 20120213
  Transmission Date: 20120608
  Serious: Yes (Hospitalization)
  Sender: FDA-Public Use
  Company Number: US-CELGENEUS-163-21880-12021421

PATIENT
  Sex: Male
  Weight: 81.72 kg

DRUGS (15)
  1. FUROSEMIDE [Concomitant]
     Route: 065
  2. ACETAMINOPHEN [Concomitant]
     Route: 065
  3. LIPITOR [Concomitant]
     Route: 065
  4. PROTONIX [Concomitant]
     Route: 065
  5. PROAIR HFA [Concomitant]
     Route: 065
  6. REVLIMID [Suspect]
     Indication: MYELODYSPLASTIC SYNDROME
     Dosage: 5 MILLIGRAM
     Route: 048
     Dates: start: 20111216
  7. PLAVIX [Concomitant]
     Route: 065
  8. SPIRIVA [Concomitant]
     Route: 065
  9. ASPIRIN [Concomitant]
     Route: 065
  10. ISOSORBIDE DINITRATE [Concomitant]
     Route: 065
  11. ATENOLOL [Concomitant]
     Route: 065
  12. CALCIUM + D [Concomitant]
     Route: 065
  13. DOXAZOSIN [Concomitant]
     Route: 065
  14. CITRACAL [Concomitant]
     Route: 065
  15. METFORMIN HCL [Concomitant]
     Route: 065

REACTIONS (1)
  - BLOOD GLUCOSE ABNORMAL [None]
